FAERS Safety Report 18308949 (Version 14)
Quarter: 2023Q1

REPORT INFORMATION
  Report Type: Report from Study
  Country: US (occurrence: US)
  Receive Date: 20200924
  Receipt Date: 20230110
  Transmission Date: 20230418
  Serious: Yes (Hospitalization, Other)
  Sender: FDA-Public Use
  Company Number: US-SHIRE-US202029834

PATIENT
  Age: 15 Year
  Sex: Male
  Weight: 45 kg

DRUGS (24)
  1. IDURSULFASE [Suspect]
     Active Substance: IDURSULFASE
     Indication: Mucopolysaccharidosis II
     Dosage: 24 MILLIGRAM, 1/WEEK
     Route: 042
     Dates: start: 20120117
  2. IDURSULFASE [Suspect]
     Active Substance: IDURSULFASE
     Indication: Mucopolysaccharidosis I
  3. HEPARIN [Concomitant]
     Active Substance: HEPARIN SODIUM
     Route: 065
  4. DIPHENHYDRAMINE [Concomitant]
     Active Substance: DIPHENHYDRAMINE
     Route: 065
  5. ALBUTEROL SULFATE [Concomitant]
     Active Substance: ALBUTEROL SULFATE
     Route: 065
  6. SODIUM CHLORIDE [Concomitant]
     Active Substance: SODIUM CHLORIDE
     Route: 065
  7. EPINEPHRINE [Concomitant]
     Active Substance: EPINEPHRINE
     Route: 065
  8. TIMOLOL MALEATE [Concomitant]
     Active Substance: TIMOLOL MALEATE
     Route: 065
  9. ACETAMINOPHEN [Concomitant]
     Active Substance: ACETAMINOPHEN
     Route: 065
  10. OXYGEN [Concomitant]
     Active Substance: OXYGEN
  11. SODIUM CHLORIDE [Concomitant]
     Active Substance: SODIUM CHLORIDE
     Route: 065
  12. PREDNISOLONE ACETATE [Concomitant]
     Active Substance: PREDNISOLONE ACETATE
  13. ATIVAN [Concomitant]
     Active Substance: LORAZEPAM
     Route: 065
  14. IBUPROFEN [Concomitant]
     Active Substance: IBUPROFEN
     Route: 048
  15. DORZOLAMIDE [Concomitant]
     Active Substance: DORZOLAMIDE
     Route: 065
  16. MONTELUKAST SODIUM [Concomitant]
     Active Substance: MONTELUKAST SODIUM
     Route: 065
  17. Lmx [Concomitant]
     Route: 065
  18. ACETAZOLAMIDE [Concomitant]
     Active Substance: ACETAZOLAMIDE
  19. LIDOCAINE [Concomitant]
     Active Substance: LIDOCAINE
     Route: 065
  20. ZYRTEC [Concomitant]
     Active Substance: CETIRIZINE HYDROCHLORIDE
     Route: 065
  21. LATANOPROST [Concomitant]
     Active Substance: LATANOPROST
     Route: 065
  22. DEXAMETHASONE [Concomitant]
     Active Substance: DEXAMETHASONE
  23. NEOMYCIN [Concomitant]
     Active Substance: NEOMYCIN
     Route: 065
  24. BACITRACIN ZINC AND POLYMYXIN B SULFATE [Concomitant]
     Active Substance: BACITRACIN ZINC\POLYMYXIN B SULFATE
     Route: 065

REACTIONS (17)
  - Visual impairment [Unknown]
  - Post procedural haemorrhage [Unknown]
  - Agitation [Unknown]
  - Poor venous access [Unknown]
  - Screaming [Unknown]
  - Aggression [Unknown]
  - Nasopharyngitis [Unknown]
  - Eye infection [Unknown]
  - Fall [Recovering/Resolving]
  - Skin abrasion [Recovering/Resolving]
  - Scratch [Unknown]
  - Eye abrasion [Unknown]
  - Catheter site haemorrhage [Unknown]
  - Infusion site extravasation [Unknown]
  - Vomiting [Unknown]
  - Intentional removal of drug delivery system by patient [Unknown]
  - Device issue [Unknown]

NARRATIVE: CASE EVENT DATE: 20220516
